FAERS Safety Report 5091309-X (Version None)
Quarter: 2006Q3

REPORT INFORMATION
  Report Type: 
  Country: None (occurrence: None)
  Receive Date: 20060829
  Receipt Date: 20060823
  Transmission Date: 20061208
  Serious: Yes (Other)
  Sender: FDA-Public Use
  Company Number: ES-BRISTOL-MYERS SQUIBB COMPANY-13485495

PATIENT
  Sex: Female

DRUGS (2)
  1. MAYGACE [Suspect]
     Indication: CACHEXIA
     Dates: start: 20060701
  2. SINTROM [Interacting]

REACTIONS (2)
  - DRUG INTERACTION [None]
  - INTERNATIONAL NORMALISED RATIO DECREASED [None]
